FAERS Safety Report 15400171 (Version 1)
Quarter: 2018Q3

REPORT INFORMATION
  Report Type: Spontaneous
  Country: PT (occurrence: PT)
  Receive Date: 20180919
  Receipt Date: 20180919
  Transmission Date: 20181010
  Serious: Yes (Hospitalization)
  Sender: FDA-Public Use
  Company Number: PT-ACCORD-071670

PATIENT
  Age: 77 Year
  Sex: Male

DRUGS (5)
  1. ANTITHYMOCYTE IMMUNOGLOBULIN [Concomitant]
     Active Substance: THYMOCYTE IMMUNE GLOBULIN NOS
     Indication: IMMUNOSUPPRESSION
  2. CICLOSPORIN [Suspect]
     Active Substance: CYCLOSPORINE
     Indication: IMMUNOSUPPRESSION
     Dosage: 50 MG BID
  3. MYCOPHENOLIC ACID. [Suspect]
     Active Substance: MYCOPHENOLIC ACID
     Indication: IMMUNOSUPPRESSION
     Dosage: 500 MG BID
  4. PREDNISOLONE. [Suspect]
     Active Substance: PREDNISOLONE
     Indication: IMMUNOSUPPRESSION
     Dosage: 5 MG ID
  5. WARFARIN [Concomitant]
     Active Substance: WARFARIN
     Indication: ANTICOAGULANT THERAPY

REACTIONS (12)
  - Abdominal wall haematoma [Recovering/Resolving]
  - Atrial fibrillation [Unknown]
  - Urinary tract infection [Unknown]
  - Cytomegalovirus infection [Recovered/Resolved]
  - Haematuria [Unknown]
  - Acute kidney injury [Unknown]
  - Post transplant lymphoproliferative disorder [Unknown]
  - Pseudomembranous colitis [Recovered/Resolved]
  - Asthenia [Unknown]
  - Clostridium difficile infection [Unknown]
  - Anaemia [Recovering/Resolving]
  - Prostate cancer [Recovered/Resolved]

NARRATIVE: CASE EVENT DATE: 200310
